FAERS Safety Report 9056868 (Version 1)
Quarter: 2013Q1

REPORT INFORMATION
  Report Type: Report from Study
  Country: JP (occurrence: JP)
  Receive Date: 20130201
  Receipt Date: 20130201
  Transmission Date: 20140127
  Serious: Yes (Other)
  Sender: FDA-Public Use
  Company Number: JP-GLAXOSMITHKLINE-B0860785A

PATIENT
  Age: 42 None
  Sex: Female
  Weight: 53 kg

DRUGS (8)
  1. TYKERB [Suspect]
     Indication: BREAST CANCER
     Route: 048
     Dates: start: 20110714, end: 20120320
  2. XELODA [Suspect]
     Route: 048
     Dates: start: 20110714, end: 20120321
  3. TRASTUZUMAB [Concomitant]
     Route: 042
     Dates: start: 20111130
  4. VINORELBINE DITARTRATE [Concomitant]
     Route: 042
     Dates: start: 20111130, end: 20120321
  5. KERATINAMIN [Concomitant]
     Indication: PROPHYLAXIS
     Route: 061
     Dates: start: 20110516
  6. HIRUDOID [Concomitant]
     Indication: PROPHYLAXIS
     Route: 061
     Dates: start: 20110516
  7. PYDOXAL [Concomitant]
     Indication: PROPHYLAXIS
     Route: 048
     Dates: start: 20111130
  8. ZOMETA [Concomitant]
     Indication: METASTASES TO BONE
     Route: 042
     Dates: start: 20110114

REACTIONS (1)
  - Duodenal ulcer [Recovering/Resolving]
